FAERS Safety Report 21648375 (Version 1)
Quarter: 2022Q4

REPORT INFORMATION
  Report Type: Report from Study
  Country: ZA (occurrence: ZA)
  Receive Date: 20221128
  Receipt Date: 20221128
  Transmission Date: 20230113
  Serious: Yes (Death)
  Sender: FDA-Public Use
  Company Number: ZA-002147023-NVSC2022ZA275406

PATIENT
  Age: 60 Year
  Sex: Female

DRUGS (1)
  1. BROLUCIZUMAB [Suspect]
     Active Substance: BROLUCIZUMAB
     Indication: Neovascular age-related macular degeneration
     Dosage: 27.6 MG IN 0.23 ML, QMO
     Route: 047
     Dates: start: 20221027

REACTIONS (1)
  - Death [Fatal]

NARRATIVE: CASE EVENT DATE: 20221115
